FAERS Safety Report 8770740 (Version 6)
Quarter: 2013Q1

REPORT INFORMATION
  Report Type: Report from Study
  Country: JP (occurrence: JP)
  Receive Date: 20120906
  Receipt Date: 20130325
  Transmission Date: 20140127
  Serious: Yes (Life-Threatening, Hospitalization, Other)
  Sender: FDA-Public Use
  Company Number: JP-PFIZER INC-2012214769

PATIENT
  Age: 65 Year
  Sex: Female
  Weight: 32 kg

DRUGS (7)
  1. CRIZOTINIB [Suspect]
     Indication: NON-SMALL CELL LUNG CANCER
     Dosage: 200 MG, 2X/DAY
     Route: 048
     Dates: start: 20120727, end: 20120809
  2. NAIXAN [Concomitant]
     Dosage: 300 MG, 3X/DAY
     Route: 048
  3. TAKEPRON [Concomitant]
     Dosage: 30 MG, 1X/DAY
     Route: 048
  4. FERROMIA [Concomitant]
     Dosage: 100 MG, 1X/DAY
     Route: 048
  5. OXINORM (OXYCODONE HYDROCHLORIDE) [Concomitant]
     Dosage: 2.5 MG, AS NEEDED
     Route: 048
  6. DUROTEP [Concomitant]
     Dosage: 2.1 MG, TRIDAILY
     Route: 062
  7. CONSTAN [Concomitant]
     Dosage: 0.4 MG, 1X/DAY
     Route: 048

REACTIONS (1)
  - Interstitial lung disease [Recovered/Resolved]
